FAERS Safety Report 13095682 (Version 1)
Quarter: 2017Q1

REPORT INFORMATION
  Report Type: Report from Study
  Country: GB (occurrence: GB)
  Receive Date: 20170109
  Receipt Date: 20170109
  Transmission Date: 20170428
  Serious: Yes (Hospitalization)
  Sender: FDA-Public Use
  Company Number: GB-ROCHE-1858630

PATIENT
  Sex: Male

DRUGS (3)
  1. OMEPRAZOLE. [Concomitant]
     Active Substance: OMEPRAZOLE
     Indication: PROPHYLAXIS
     Dosage: STARTED YEARS AGO
     Route: 048
  2. ROACTEMRA [Suspect]
     Active Substance: TOCILIZUMAB
     Indication: RHEUMATOID ARTHRITIS
     Route: 058
     Dates: start: 20161117
  3. PREDNISOLONE. [Concomitant]
     Active Substance: PREDNISOLONE
     Indication: RHEUMATOID ARTHRITIS
     Dosage: STARTED YEARS AGO
     Route: 048

REACTIONS (8)
  - Incorrect product storage [Unknown]
  - Discomfort [Unknown]
  - Liquid product physical issue [Unknown]
  - Tenderness [Unknown]
  - Nervousness [Recovered/Resolved]
  - Intercepted medication error [Unknown]
  - Headache [Unknown]
  - Tremor [Recovered/Resolved]
